FAERS Safety Report 19105305 (Version 2)
Quarter: 2021Q2

REPORT INFORMATION
  Report Type: Report from Study
  Country: US (occurrence: US)
  Receive Date: 20210407
  Receipt Date: 20210417
  Transmission Date: 20210717
  Serious: Yes (Other)
  Sender: FDA-Public Use
  Company Number: NVSC2021US071653

PATIENT
  Sex: Male
  Weight: 88.44 kg

DRUGS (1)
  1. ENTRESTO [Suspect]
     Active Substance: SACUBITRIL\VALSARTAN
     Indication: PRODUCT USED FOR UNKNOWN INDICATION
     Dosage: 100 MG, BID (49/51 MG)
     Route: 065

REACTIONS (7)
  - Cardiac disorder [Unknown]
  - Muscle spasms [Unknown]
  - Cough [Unknown]
  - Blood pressure fluctuation [Unknown]
  - Myocardial infarction [Unknown]
  - Cardiomegaly [Unknown]
  - Dyspnoea [Unknown]
